FAERS Safety Report 5627430-4 (Version None)
Quarter: 2008Q1

REPORT INFORMATION
  Report Type: 
  Country: None (occurrence: None)
  Receive Date: 20080215
  Receipt Date: 20080208
  Transmission Date: 20080703
  Serious: Yes (Other)
  Sender: FDA-Public Use
  Company Number: US-BAYER-200813249NA

PATIENT
  Age: 72 Year
  Sex: Male
  Weight: 45 kg

DRUGS (10)
  1. SORAFENIB [Suspect]
     Indication: NON-SMALL CELL LUNG CANCER
     Route: 048
  2. SORAFENIB OR PLACEBO [Suspect]
     Indication: NON-SMALL CELL LUNG CANCER
     Route: 048
     Dates: start: 20070313, end: 20070328
  3. ALBUTEROL SULFATE [Concomitant]
  4. AVODART [Concomitant]
  5. ASPIRIN [Concomitant]
     Dates: start: 20070313
  6. ISOSORBIDE DINITRATE [Concomitant]
  7. MULTI-VITAMIN [Concomitant]
  8. OXYGEN [Concomitant]
  9. PREDNISONE TAB [Concomitant]
  10. ZOCOR [Concomitant]

REACTIONS (2)
  - PALMAR-PLANTAR ERYTHRODYSAESTHESIA SYNDROME [None]
  - PERIPHERAL MOTOR NEUROPATHY [None]
